FAERS Safety Report 12467063 (Version 1)
Quarter: 2016Q2

REPORT INFORMATION
  Report Type: Spontaneous
  Country: US (occurrence: None)
  Receive Date: 20160614
  Receipt Date: 20160614
  Transmission Date: 20160815
  Serious: Yes (Other)
  Sender: FDA-Public Use
  Company Number: None

PATIENT
  Age: 43 Year
  Sex: Female
  Weight: 64.41 kg

DRUGS (6)
  1. VITAMIN D [Concomitant]
     Active Substance: CHOLECALCIFEROL
  2. MULTIVITAMIN [Concomitant]
     Active Substance: VITAMINS
  3. DOXYCLYCLINE [Suspect]
     Active Substance: DOXYCYCLINE
     Indication: LYME DISEASE
     Dosage: 46 CAPSULE(S) EVERY 12 HOURS TAKEN BY MOUTH
     Route: 048
  4. FLAXSEED [Concomitant]
     Active Substance: FLAX SEED
  5. FISH OIL [Concomitant]
     Active Substance: FISH OIL
  6. GLUCOSAMINE AND CHONDROITIN WITH MSM [Concomitant]

REACTIONS (2)
  - Asthma [None]
  - Type IV hypersensitivity reaction [None]

NARRATIVE: CASE EVENT DATE: 20160528
